FAERS Safety Report 9119402 (Version 1)
Quarter: 2013Q1

REPORT INFORMATION
  Report Type: Spontaneous
  Country: IT (occurrence: IT)
  Receive Date: 20130207
  Receipt Date: 20130207
  Transmission Date: 20140127
  Serious: Yes (Hospitalization)
  Sender: FDA-Public Use
  Company Number: IT-MYLANLABS-2013S1002039

PATIENT
  Age: 82 Year
  Sex: Female

DRUGS (7)
  1. CLOPIDOGREL [Suspect]
     Indication: ANGINA UNSTABLE
     Route: 048
     Dates: start: 20121102, end: 20121105
  2. ACIDO ACETILSALICILICO [Concomitant]
     Indication: MYOCARDIAL ISCHAEMIA
     Dates: start: 20110101, end: 20130118
  3. METOPROLOL [Concomitant]
     Indication: MYOCARDIAL ISCHAEMIA
     Dates: start: 20110101, end: 20130118
  4. PANTOPRAZOL [Concomitant]
     Indication: GASTRITIS
     Dates: start: 20110101, end: 20130118
  5. POTASSIUM CANRENOATE [Concomitant]
     Indication: MYOCARDIAL ISCHAEMIA
     Dates: start: 20110101, end: 20130118
  6. TORASEMIDE [Concomitant]
     Indication: MYOCARDIAL ISCHAEMIA
     Dates: start: 20110101, end: 20130118
  7. ISOSORBIDE MONONITRATE [Concomitant]
     Indication: MYOCARDIAL ISCHAEMIA
     Dates: start: 20110101, end: 20130118

REACTIONS (1)
  - Autoimmune thrombocytopenia [Recovering/Resolving]
